FAERS Safety Report 20542583 (Version 1)
Quarter: 2022Q1

REPORT INFORMATION
  Report Type: Spontaneous
  Country: CA (occurrence: CA)
  Receive Date: 20220302
  Receipt Date: 20220302
  Transmission Date: 20220423
  Serious: Yes (Hospitalization)
  Sender: FDA-Public Use
  Company Number: CA-BAXTER-2022BAX004502

PATIENT
  Age: 58 Year
  Sex: Male
  Weight: 89 kg

DRUGS (10)
  1. IFEX [Suspect]
     Active Substance: IFOSFAMIDE
     Indication: Non-Hodgkin^s lymphoma
     Dosage: IFOSFAMIDE FOR INJECTION, DOSAGE FORM: POWDER FOR SOLUTION INTRAVENOUS
     Route: 065
  2. MESNA [Suspect]
     Active Substance: MESNA
     Indication: Non-Hodgkin^s lymphoma
     Dosage: DOSAGE FORM: NOT SPECIFIED
     Route: 065
  3. CARBOPLATIN [Suspect]
     Active Substance: CARBOPLATIN
     Indication: Non-Hodgkin^s lymphoma
     Route: 065
  4. RITUXAN [Suspect]
     Active Substance: RITUXIMAB
     Indication: Non-Hodgkin^s lymphoma
     Route: 065
  5. ETOPOSIDE [Concomitant]
     Active Substance: ETOPOSIDE
     Indication: Product used for unknown indication
     Dosage: DOSAGE FORM: NOT SPECIFIED
     Route: 065
  6. ACETAMINOPHEN [Concomitant]
     Active Substance: ACETAMINOPHEN
     Indication: Product used for unknown indication
     Dosage: DOSAGE FORM: NOT SPECIFIED
     Route: 065
  7. DEXAMETHASONE [Concomitant]
     Active Substance: DEXAMETHASONE
     Indication: Product used for unknown indication
     Route: 065
  8. DIPHENHYDRAMINE [Concomitant]
     Active Substance: DIPHENHYDRAMINE
     Indication: Product used for unknown indication
     Dosage: DOSAGE FORM: NOT SPECIFIED
     Route: 065
  9. FILGRASTIM [Concomitant]
     Active Substance: FILGRASTIM
     Indication: Product used for unknown indication
     Dosage: GRASTOFIL SINGLE USE PRE-FILLED SYRINGE
     Route: 065
  10. ONDANSETRON [Concomitant]
     Active Substance: ONDANSETRON
     Indication: Product used for unknown indication
     Dosage: DOSAGE FORM: NOT SPECIFIED
     Route: 065

REACTIONS (1)
  - Febrile neutropenia [Recovered/Resolved]
